FAERS Safety Report 8062518-2 (Version None)
Quarter: 2012Q1

REPORT INFORMATION
  Report Type: 
  Country: None (occurrence: None)
  Receive Date: 20120123
  Receipt Date: 20120120
  Transmission Date: 20120608
  Serious: Yes (Other)
  Sender: FDA-Public Use
  Company Number: US-PFIZER INC-2012017374

PATIENT
  Sex: Female
  Weight: 63.492 kg

DRUGS (5)
  1. COENZYME Q10 [Concomitant]
     Indication: IMMUNE ENHANCEMENT THERAPY
     Dosage: UNK
  2. GABAPENTIN [Concomitant]
     Indication: SCIATICA
     Dosage: UNK
  3. ASPIRIN [Concomitant]
     Dosage: 81 MG, DAILY
  4. VITAMIN D [Concomitant]
     Indication: ROUTINE HEALTH MAINTENANCE
     Dosage: UNK
  5. CHANTIX [Suspect]
     Indication: SMOKING CESSATION THERAPY
     Dosage: UNK
     Dates: start: 20111222, end: 20111230

REACTIONS (3)
  - ANXIETY [None]
  - NAUSEA [None]
  - BLOOD PRESSURE INCREASED [None]
